FAERS Safety Report 13301942 (Version 2)
Quarter: 2017Q2

REPORT INFORMATION
  Report Type: Spontaneous
  Country: IN (occurrence: IN)
  Receive Date: 20170307
  Receipt Date: 20170605
  Transmission Date: 20170830
  Serious: Yes (Other)
  Sender: FDA-Public Use
  Company Number: IN-PFIZER INC-2016561550

PATIENT
  Age: 63 Year
  Sex: Female

DRUGS (3)
  1. PALBACE [Suspect]
     Active Substance: PALBOCICLIB
     Dosage: UNK, 1X/DAY
     Route: 048
     Dates: start: 20161205
  2. PALBACE [Suspect]
     Active Substance: PALBOCICLIB
     Indication: BREAST CANCER METASTATIC
     Dosage: 125 MG, 1X/DAY
     Route: 048
     Dates: start: 20161107
  3. LETROZOLE. [Concomitant]
     Active Substance: LETROZOLE
     Dosage: 2.5 MG, 1X/DAY
     Route: 048
     Dates: start: 20161107

REACTIONS (14)
  - Haemoptysis [Unknown]
  - Feeding disorder [Unknown]
  - Respiratory distress [Unknown]
  - Malaise [Unknown]
  - Dyspnoea [Not Recovered/Not Resolved]
  - Vomiting [Unknown]
  - Epistaxis [Recovering/Resolving]
  - Neoplasm progression [Unknown]
  - Pleural effusion [Unknown]
  - Respiratory rate increased [Unknown]
  - Cough [Unknown]
  - Pyrexia [Recovered/Resolved]
  - Diarrhoea [Not Recovered/Not Resolved]
  - General physical health deterioration [Unknown]

NARRATIVE: CASE EVENT DATE: 20161121
